FAERS Safety Report 7962659-1 (Version None)
Quarter: 2011Q4

REPORT INFORMATION
  Report Type: 
  Country: None (occurrence: None)
  Receive Date: 20111207
  Receipt Date: 20111129
  Transmission Date: 20120403
  Serious: Yes (Hospitalization)
  Sender: FDA-Public Use
  Company Number: US-B.I. PHARMACEUTICALS,INC./RIDGEFIELD-2011-BP-24746BP

PATIENT
  Age: 82 Year
  Sex: Female
  Weight: 75 kg

DRUGS (4)
  1. PRADAXA [Suspect]
     Indication: ATRIAL FIBRILLATION
     Dosage: 300 MG
     Dates: end: 20110904
  2. METOPROLOL TARTRATE [Concomitant]
  3. LOSARTAN POTASSIUM [Concomitant]
  4. FELODIPINE [Concomitant]

REACTIONS (1)
  - SUBDURAL HAEMORRHAGE [None]
